APPROVED DRUG PRODUCT: TERRAMYCIN
Active Ingredient: OXYTETRACYCLINE
Strength: 250MG
Dosage Form/Route: TABLET;ORAL
Application: N050287 | Product #001
Applicant: PFIZER LABORATORIES DIV PFIZER INC
Approved: Approved Prior to Jan 1, 1982 | RLD: No | RS: No | Type: DISCN